FAERS Safety Report 6027162-7 (Version None)
Quarter: 2008Q4

REPORT INFORMATION
  Report Type: 
  Country: None (occurrence: None)
  Receive Date: 20081231
  Receipt Date: 20081231
  Transmission Date: 20090506
  Serious: No
  Sender: FDA-Public Use
  Company Number: None

PATIENT
  Age: 46 Year
  Sex: Female
  Weight: 68.0396 kg

DRUGS (2)
  1. LEVAQUIN [Suspect]
     Indication: PHARYNGITIS STREPTOCOCCAL
     Dosage: ONE PER DAY ONCE DAILY PO
     Route: 048
     Dates: start: 20081111, end: 20081118
  2. LEVAQUIN [Suspect]
     Indication: PNEUMONIA
     Dosage: ONE PER DAY ONCE DAILY PO
     Route: 048
     Dates: start: 20081111, end: 20081118

REACTIONS (6)
  - ABDOMINAL PAIN UPPER [None]
  - ANXIETY [None]
  - CHILLS [None]
  - INSOMNIA [None]
  - NIGHT SWEATS [None]
  - TREMOR [None]
